FAERS Safety Report 10860971 (Version 1)
Quarter: 2015Q1

REPORT INFORMATION
  Report Type: Spontaneous
  Country: US (occurrence: None)
  Receive Date: 20150218
  Receipt Date: 20150218
  Transmission Date: 20150721
  Serious: Yes (Life-Threatening, Other)
  Sender: FDA-Public Use
  Company Number: None

PATIENT
  Age: 39 Year
  Sex: Female

DRUGS (5)
  1. WELLBUTRIN XL [Suspect]
     Active Substance: BUPROPION HYDROCHLORIDE
     Indication: DEPRESSION
     Dosage: 1 PILL QD ORAL
     Route: 048
     Dates: start: 20150211, end: 20150213
  2. LOSARTAN [Concomitant]
     Active Substance: LOSARTAN
  3. LORAZEPAM. [Concomitant]
     Active Substance: LORAZEPAM
  4. OMEPRAZOLE. [Concomitant]
     Active Substance: OMEPRAZOLE
  5. BUSPAR [Concomitant]
     Active Substance: BUSPIRONE HYDROCHLORIDE

REACTIONS (4)
  - Formication [None]
  - Product substitution issue [None]
  - Malaise [None]
  - Discomfort [None]

NARRATIVE: CASE EVENT DATE: 20150212
